FAERS Safety Report 9376369 (Version 2)
Quarter: 2014Q3

REPORT INFORMATION
  Report Type: Spontaneous
  Country: DK (occurrence: DK)
  Receive Date: 20130701
  Receipt Date: 20140718
  Transmission Date: 20150326
  Serious: Yes (Death)
  Sender: FDA-Public Use
  Company Number: DK-AMGEN-DNKSP2013045290

PATIENT
  Age: 67 Year
  Sex: Male

DRUGS (3)
  1. ENBREL [Suspect]
     Active Substance: ETANERCEPT
     Indication: RHEUMATOID ARTHRITIS
  2. ENBREL [Suspect]
     Active Substance: ETANERCEPT
     Indication: RHEUMATOID ARTHRITIS
     Dosage: 50 MG, QWK
     Route: 058
     Dates: start: 20110922
  3. METHOTREXATE SODIUM. [Concomitant]
     Active Substance: METHOTREXATE SODIUM
     Indication: RHEUMATOID ARTHRITIS
     Dosage: 15 MG, WEEKLY (STRENGTH 2.5 MG)
     Route: 048
     Dates: start: 20110419

REACTIONS (1)
  - Endocarditis staphylococcal [Fatal]

NARRATIVE: CASE EVENT DATE: 20130525
